FAERS Safety Report 13399522 (Version 1)
Quarter: 2017Q2

REPORT INFORMATION
  Report Type: Spontaneous
  Country: US (occurrence: US)
  Receive Date: 20170404
  Receipt Date: 20170404
  Transmission Date: 20170830
  Serious: No
  Sender: FDA-Public Use
  Company Number: US-ALEXION PHARMACEUTICALS INC.-A201703206

PATIENT
  Sex: Female

DRUGS (1)
  1. STRENSIQ [Suspect]
     Active Substance: ASFOTASE ALFA
     Indication: HYPOPHOSPHATASIA
     Dosage: UNK UNK, Q3W
     Route: 058

REACTIONS (6)
  - Somnolence [Unknown]
  - Drug effect delayed [Unknown]
  - Injection site bruising [Unknown]
  - Injection site urticaria [Unknown]
  - Bone pain [Unknown]
  - Insomnia [Unknown]
